FAERS Safety Report 21480801 (Version 1)
Quarter: 2022Q4

REPORT INFORMATION
  Report Type: Spontaneous
  Country: JP (occurrence: JP)
  Receive Date: 20221019
  Receipt Date: 20221019
  Transmission Date: 20230112
  Serious: Yes (Hospitalization, Other)
  Sender: FDA-Public Use
  Company Number: JP-PFIZER INC-202201237043

PATIENT
  Sex: Female

DRUGS (4)
  1. RHEUMATREX [Interacting]
     Active Substance: METHOTREXATE SODIUM
     Dosage: UNK, ONCE WEEKLY
     Route: 048
  2. VERAPAMIL HYDROCHLORIDE [Interacting]
     Active Substance: VERAPAMIL HYDROCHLORIDE
  3. IGURATIMOD [Concomitant]
     Active Substance: IGURATIMOD
     Route: 048
  4. FOLIC ACID [Concomitant]
     Active Substance: FOLIC ACID
     Route: 048

REACTIONS (4)
  - Drug interaction [Recovered/Resolved]
  - Blood pressure increased [Recovered/Resolved]
  - Heart rate increased [Unknown]
  - Autonomic neuropathy [Unknown]
